FAERS Safety Report 24663052 (Version 1)
Quarter: 2024Q4

REPORT INFORMATION
  Report Type: Spontaneous
  Country: US (occurrence: US)
  Receive Date: 20241126
  Receipt Date: 20241126
  Transmission Date: 20250115
  Serious: Yes (Hospitalization)
  Sender: BRISTOL-MYERS SQUIBB COMPANY
  Company Number: US-BRISTOL-MYERS SQUIBB COMPANY-2024-183321

PATIENT
  Age: 83 Year
  Sex: Male

DRUGS (1)
  1. REVLIMID [Suspect]
     Active Substance: LENALIDOMIDE
     Indication: Diffuse large B-cell lymphoma
     Dosage: FREQUENCY: QD X 21 DAYS THEN 7 DAYS OFF
     Route: 048

REACTIONS (6)
  - Oxygen saturation decreased [Unknown]
  - Dry skin [Unknown]
  - Dry mouth [Unknown]
  - Pruritus [Recovered/Resolved]
  - Skin discolouration [Unknown]
  - Off label use [Unknown]
